FAERS Safety Report 11438027 (Version 1)
Quarter: 2015Q3

REPORT INFORMATION
  Report Type: Spontaneous
  Country: US (occurrence: US)
  Receive Date: 20150831
  Receipt Date: 20150831
  Transmission Date: 20151125
  Serious: Yes (Other)
  Sender: FDA-Public Use
  Company Number: US-ABBVIE-15P-163-1452304-00

PATIENT

DRUGS (1)
  1. ANDROGEL [Suspect]
     Active Substance: TESTOSTERONE
     Indication: BLOOD TESTOSTERONE DECREASED
     Route: 061
     Dates: start: 2007, end: 2014

REACTIONS (4)
  - Cardiac arrest [Unknown]
  - Pain [Unknown]
  - Social problem [Unknown]
  - Economic problem [Unknown]

NARRATIVE: CASE EVENT DATE: 201310
